FAERS Safety Report 6234271-6 (Version None)
Quarter: 2009Q2

REPORT INFORMATION
  Report Type: 
  Country: None (occurrence: None)
  Receive Date: 20090618
  Receipt Date: 20090611
  Transmission Date: 20091009
  Serious: Yes (Hospitalization)
  Sender: FDA-Public Use
  Company Number: US-JNJFOC-20090604358

PATIENT
  Sex: Male

DRUGS (11)
  1. RISPERIDONE [Suspect]
     Route: 048
  2. RISPERIDONE [Suspect]
     Indication: SCHIZOPHRENIA
     Route: 048
  3. CLOZAPINE [Suspect]
     Route: 065
  4. CLOZAPINE [Suspect]
     Indication: SCHIZOPHRENIA
     Route: 065
  5. LITHIUM CARBONATE [Concomitant]
     Route: 048
  6. LORAZEPAM [Concomitant]
     Dosage: ONE TABLET IN AM AND 1 TABLET IN PM
     Route: 048
  7. OXYBUTYNINE HYDROCHLORIDE [Concomitant]
     Dosage: AT HOURS OF SLEEP
     Route: 048
  8. MULTIVITAMINS AND MINERALS [Concomitant]
     Route: 048
  9. ASCORBIC ACID [Concomitant]
     Route: 048
  10. ASPIRIN AND DIPYRIDAMOLE [Concomitant]
     Route: 048
  11. SIMVASTATIN [Concomitant]
     Route: 048

REACTIONS (1)
  - HEAT STROKE [None]
